FAERS Safety Report 10168158 (Version 1)
Quarter: 2014Q2

REPORT INFORMATION
  Report Type: Spontaneous
  Country: IT (occurrence: IT)
  Receive Date: 20140512
  Receipt Date: 20140512
  Transmission Date: 20141212
  Serious: Yes (Hospitalization)
  Sender: FDA-Public Use
  Company Number: IT-MYLANLABS-2014S1010273

PATIENT
  Age: 30 Year
  Sex: Male

DRUGS (2)
  1. RAMIPRIL [Suspect]
     Indication: PRODUCT USED FOR UNKNOWN INDICATION
     Dosage: 100 MG TOTAL
     Route: 048
     Dates: start: 20140329, end: 20140329
  2. SERTRALINE [Suspect]
     Indication: PRODUCT USED FOR UNKNOWN INDICATION
     Dosage: 1500 MG TOTAL
     Route: 048
     Dates: start: 20140329

REACTIONS (3)
  - Drug abuse [Unknown]
  - Psychomotor hyperactivity [Unknown]
  - Intentional overdose [Unknown]
